FAERS Safety Report 23774633 (Version 1)
Quarter: 2024Q2

REPORT INFORMATION
  Report Type: Spontaneous
  Country: CA (occurrence: CA)
  Receive Date: 20240423
  Receipt Date: 20240423
  Transmission Date: 20240716
  Serious: No
  Sender: FDA-Public Use
  Company Number: CA-ABBVIE-5723563

PATIENT
  Sex: Female

DRUGS (1)
  1. ALPHAGAN P [Suspect]
     Active Substance: BRIMONIDINE TARTRATE
     Indication: Product used for unknown indication
     Dosage: FORM STRENGTH: 5 MILLIGRAM
     Route: 047

REACTIONS (3)
  - Foreign body in eye [Unknown]
  - Product packaging difficult to open [Unknown]
  - Product contamination physical [Unknown]
